FAERS Safety Report 4596253-X (Version None)
Quarter: 2005Q1

REPORT INFORMATION
  Report Type: 
  Country: None (occurrence: None)
  Receive Date: 20050224
  Receipt Date: 20050215
  Transmission Date: 20050727
  Serious: Yes (Other)
  Sender: FDA-Public Use
  Company Number: 2005-01-1023

PATIENT
  Age: 28 Year
  Sex: Male
  Weight: 77 kg

DRUGS (4)
  1. INTRON A [Suspect]
     Indication: HEPATITIS C
     Dosage: SEE IMAGE,  INTRAMUSCULAR
     Route: 030
     Dates: start: 20041027, end: 20041109
  2. INTRON A [Suspect]
     Indication: HEPATITIS C
     Dosage: SEE IMAGE,  INTRAMUSCULAR
     Route: 030
     Dates: start: 20041027, end: 20050106
  3. INTRON A [Suspect]
     Indication: HEPATITIS C
     Dosage: SEE IMAGE,  INTRAMUSCULAR
     Route: 030
     Dates: start: 20041111, end: 20050106
  4. REBETOL [Suspect]
     Indication: HEPATITIS C
     Dosage: 800 MG ORAL
     Route: 048
     Dates: start: 20041027, end: 20050106

REACTIONS (4)
  - ABNORMAL BEHAVIOUR [None]
  - DEPRESSED LEVEL OF CONSCIOUSNESS [None]
  - DEPRESSION [None]
  - PYREXIA [None]
